FAERS Safety Report 12754384 (Version 2)
Quarter: 2017Q3

REPORT INFORMATION
  Report Type: Spontaneous
  Country: JP (occurrence: JP)
  Receive Date: 20160916
  Receipt Date: 20170730
  Transmission Date: 20171127
  Serious: Yes (Other)
  Sender: FDA-Public Use
  Company Number: PHJP2016JP026041

PATIENT
  Age: 69 Year
  Sex: Male

DRUGS (3)
  1. NEORAL [Suspect]
     Active Substance: CYCLOSPORINE
     Dosage: 200-250 MG, QD
     Route: 048
  2. NEORAL [Suspect]
     Active Substance: CYCLOSPORINE
     Dosage: 250 MG, QD
     Route: 048
  3. NEORAL [Suspect]
     Active Substance: CYCLOSPORINE
     Indication: STILL^S DISEASE
     Dosage: 50 MG, QD
     Route: 048

REACTIONS (7)
  - Pyrexia [Recovered/Resolved]
  - Arthropathy [Recovered/Resolved]
  - Alanine aminotransferase increased [Recovering/Resolving]
  - Product use in unapproved indication [Unknown]
  - Still^s disease [Unknown]
  - Serum ferritin increased [Recovering/Resolving]
  - C-reactive protein increased [Recovering/Resolving]
